FAERS Safety Report 6610574-8 (Version None)
Quarter: 2010Q1

REPORT INFORMATION
  Report Type: 
  Country: None (occurrence: None)
  Receive Date: 20100302
  Receipt Date: 20100224
  Transmission Date: 20100710
  Serious: Yes (Death)
  Sender: FDA-Public Use
  Company Number: RS-GENENTECH-298288

PATIENT
  Sex: Male

DRUGS (9)
  1. RITUXIMAB [Suspect]
     Indication: NON-HODGKIN'S LYMPHOMA
     Dosage: 370 MG/M2, Q3W
     Route: 042
     Dates: start: 20080709, end: 20081208
  2. CYCLOPHOSPHAMIDE [Suspect]
     Indication: NON-HODGKIN'S LYMPHOMA
     Dosage: 1350 MG, Q3W
     Route: 042
     Dates: start: 20080709, end: 20081027
  3. CYCLOPHOSPHAMIDE [Suspect]
     Dosage: 70 MG/M2, Q21D
     Route: 042
     Dates: end: 20090819
  4. VINCRISTINE [Suspect]
     Indication: NON-HODGKIN'S LYMPHOMA
     Dosage: 2 MG, Q3W
     Route: 042
     Dates: start: 20080709, end: 20081027
  5. DOXORUBICIN HCL [Concomitant]
     Indication: PREMEDICATION
     Dosage: 80 MG, Q3W
     Route: 042
  6. DOXORUBICIN HCL [Concomitant]
     Dosage: 50 MG/M2, Q21D
     Dates: start: 20080709, end: 20081227
  7. PRONISON [Concomitant]
     Indication: PREMEDICATION
     Dosage: 80 MG, Q3W
     Route: 042
     Dates: start: 20080709, end: 20081027
  8. PREDNISOLONE [Concomitant]
     Indication: NON-HODGKIN'S LYMPHOMA
     Dosage: 80 MG, Q21D
     Route: 042
     Dates: start: 20080703, end: 20081027
  9. FLUDARABINE [Concomitant]
     Indication: NON-HODGKIN'S LYMPHOMA
     Dosage: 30 MG/M2, UNK
     Route: 042
     Dates: start: 20090610, end: 20090813

REACTIONS (1)
  - ENCEPHALITIS [None]
